FAERS Safety Report 26159911 (Version 2)
Quarter: 2025Q4

REPORT INFORMATION
  Report Type: Report from Study
  Country: US (occurrence: None)
  Receive Date: 20251216
  Receipt Date: 20251221
  Transmission Date: 20260118
  Serious: Yes (Other)
  Sender: UCB
  Company Number: US-UCBSA-2025079500

PATIENT
  Age: 16 Year
  Weight: 43.95 kg

DRUGS (14)
  1. FENFLURAMINE [Suspect]
     Active Substance: FENFLURAMINE
     Indication: Lennox-Gastaut syndrome
     Dosage: 5.7 MILLILITER, 2X/DAY (BID) MOUTH OR VIA G-TUBE IN THE MORNING AND IN THE EVENING
  2. FENFLURAMINE [Suspect]
     Active Substance: FENFLURAMINE
     Dosage: 12.54 MILLIGRAM PER DAY
  3. BANZEL [Concomitant]
     Active Substance: RUFINAMIDE
     Indication: Product used for unknown indication
     Dosage: 15 MILLILITER, 2X/DAY (BID)
  4. BANZEL [Concomitant]
     Active Substance: RUFINAMIDE
     Dosage: 24 MILLILITER, 2X/DAY (BID)
  5. NAYZILAM [Concomitant]
     Active Substance: MIDAZOLAM
     Indication: Seizure
     Dosage: 5 MILLIGRAM AS NEEDED FOR SEIZURE, ONE ADDITIONAL SPRAY (5 MG DOSE) INTO THE OPPOSITE NOSTRIL MAY BE ADMINISTERED AFTER 10 MINUTES IF THE PATIENT HAS NOT RESPONDED TO THE INITIAL DOSE
  6. LAMICTAL [Concomitant]
     Active Substance: LAMOTRIGINE
     Indication: Product used for unknown indication
     Dosage: 350 MILLIGRAM, 2X/DAY (BID)
     Route: 061
  7. LAMICTAL [Concomitant]
     Active Substance: LAMOTRIGINE
     Dosage: UNK 25 MG TABLET, PER TITRATION SCHEDULE TO TARGET DOSE OF 2 TB TWICE DAILY (ALONG WITH 100 MG TB FOR TARGET DOSE OF 350 MG TWICE DAILY)
     Route: 061
  8. EPIDIOLEX [Concomitant]
     Active Substance: CANNABIDIOL
     Indication: Product used for unknown indication
     Dosage: 3.5 MILLILITER, 2X/DAY (BID)
     Route: 061
  9. ONFI [Concomitant]
     Active Substance: CLOBAZAM
     Indication: Product used for unknown indication
     Dosage: 7 MILLILITER, 2X/DAY (BID)
  10. ONFI [Concomitant]
     Active Substance: CLOBAZAM
     Dosage: 8 MILLILITER, 2X/DAY (BID)
  11. GLYCOPYRROLATE [Concomitant]
     Active Substance: GLYCOPYRROLATE
     Indication: Product used for unknown indication
     Dosage: UNK TAKE 5 MLS BY MOUTH  2 TIMES DAILY 8 ML TWICE DAILY
     Route: 061
  12. VENTOLIN [Concomitant]
     Active Substance: ALBUTEROL SULFATE
     Indication: Wheezing
     Dosage: 3 MILLILITER EVERY 6 HOURS AS NEEDED
  13. PROVENTIL HFA [Concomitant]
     Active Substance: ALBUTEROL SULFATE
     Indication: Dyspnoea
     Dosage: UNK
  14. PROVENTIL HFA [Concomitant]
     Active Substance: ALBUTEROL SULFATE
     Indication: Wheezing

REACTIONS (4)
  - Mitral valve incompetence [Not Recovered/Not Resolved]
  - Generalised tonic-clonic seizure [Unknown]
  - Seizure [Unknown]
  - Atonic seizures [Unknown]
